FAERS Safety Report 5703274-X (Version None)
Quarter: 2008Q2

REPORT INFORMATION
  Report Type: 
  Country: None (occurrence: None)
  Receive Date: 20080411
  Receipt Date: 20080331
  Transmission Date: 20081010
  Serious: Yes (Other)
  Sender: FDA-Public Use
  Company Number: JP-PFIZER INC-2008015541

PATIENT
  Sex: Male

DRUGS (8)
  1. DALACIN S [Suspect]
     Indication: PERITONSILLAR ABSCESS
     Route: 042
     Dates: start: 20080215, end: 20080215
  2. ROCEPHIN [Concomitant]
     Dosage: DAILY DOSE:1GRAM
     Route: 042
     Dates: start: 20080213, end: 20080214
  3. TRANEXAMIC ACID [Concomitant]
     Indication: PERITONSILLAR ABSCESS
     Dosage: DAILY DOSE:500MG
     Route: 042
     Dates: start: 20080213, end: 20080215
  4. CRAVIT [Concomitant]
     Indication: PERITONSILLAR ABSCESS
     Route: 048
     Dates: start: 20080213, end: 20080215
  5. VOLTAREN [Concomitant]
     Indication: PERITONSILLAR ABSCESS
     Route: 048
     Dates: start: 20080213, end: 20080215
  6. VITACIMIN [Concomitant]
     Route: 042
     Dates: start: 20080213, end: 20080215
  7. FLAVINE ADENINE DINUCLEOTIDE [Concomitant]
     Dosage: DAILY DOSE:10MG
     Route: 042
     Dates: start: 20080213, end: 20080215
  8. GLUCOSE [Concomitant]
     Dosage: DAILY DOSE:250ML
     Route: 042
     Dates: start: 20080213, end: 20080214

REACTIONS (3)
  - CHEST DISCOMFORT [None]
  - FEELING ABNORMAL [None]
  - PALPITATIONS [None]
